FAERS Safety Report 6445642-7 (Version None)
Quarter: 2009Q4

REPORT INFORMATION
  Report Type: 
  Country: None (occurrence: None)
  Receive Date: 20091118
  Receipt Date: 20091118
  Transmission Date: 20100525
  Serious: Yes (Disabling)
  Sender: FDA-Public Use
  Company Number: None

PATIENT
  Age: 61 Year
  Sex: Female
  Weight: 99.7913 kg

DRUGS (2)
  1. ZOCOR [Suspect]
     Indication: HYPERTENSION
     Dosage: ZOCOR 1 PR DAY FOR 30 DAYS
     Dates: start: 20090901, end: 20091001
  2. LIPITOR [Suspect]
     Indication: BLOOD CHOLESTEROL INCREASED
     Dosage: LIPITOR 1 PR DAY FOR 30 DAYS
     Dates: start: 20090901, end: 20091001

REACTIONS (2)
  - RASH PRURITIC [None]
  - URTICARIA [None]
